FAERS Safety Report 16298191 (Version 1)
Quarter: 2019Q2

REPORT INFORMATION
  Report Type: Other
  Country: LT (occurrence: GB)
  Receive Date: 20190510
  Receipt Date: 20190510
  Transmission Date: 20190711
  Serious: Yes (Hospitalization)
  Sender: FDA-Public Use
  Company Number: GB-BIODELIVERY SCIENCES INTERNATIONAL-2019BDSI0365

PATIENT
  Age: 32 Year
  Sex: Female

DRUGS (2)
  1. FENTANYL CITRATE. [Suspect]
     Active Substance: FENTANYL CITRATE
     Indication: INDUCTION OF ANAESTHESIA
     Dosage: UNKNOWN
     Route: 065
  2. PROPOFOL. [Suspect]
     Active Substance: PROPOFOL
     Indication: PRODUCT USED FOR UNKNOWN INDICATION
     Route: 065

REACTIONS (4)
  - Pulmonary hypertension [Recovering/Resolving]
  - Circulatory collapse [Recovering/Resolving]
  - Pulmonary embolism [Unknown]
  - Exposure during pregnancy [Unknown]
